FAERS Safety Report 12080139 (Version 3)
Quarter: 2016Q2

REPORT INFORMATION
  Report Type: Spontaneous
  Country: BR (occurrence: BR)
  Receive Date: 20160216
  Receipt Date: 20160613
  Transmission Date: 20160815
  Serious: Yes (Other)
  Sender: FDA-Public Use
  Company Number: BR-JNJFOC-20160211671

PATIENT
  Age: 51 Year
  Sex: Female
  Weight: 115 kg

DRUGS (1)
  1. SIMPONI [Suspect]
     Active Substance: GOLIMUMAB
     Indication: RHEUMATOID ARTHRITIS
     Route: 058
     Dates: start: 20150407

REACTIONS (8)
  - Asthenia [Unknown]
  - Off label use [Unknown]
  - Inflammation [Unknown]
  - Arthralgia [Unknown]
  - Cholelithiasis [Unknown]
  - Influenza [Unknown]
  - Product use issue [Unknown]
  - Drug ineffective [Unknown]

NARRATIVE: CASE EVENT DATE: 2015
